FAERS Safety Report 9604375 (Version 3)
Quarter: 2014Q2

REPORT INFORMATION
  Report Type: Spontaneous
  Country: GB (occurrence: GB)
  Receive Date: 20131008
  Receipt Date: 20140410
  Transmission Date: 20141212
  Serious: Yes (Other)
  Sender: FDA-Public Use
  Company Number: PHFR2013GB004077

PATIENT
  Age: 47 Year
  Sex: Male

DRUGS (2)
  1. CLOZARIL [Suspect]
     Indication: SCHIZOPHRENIA
     Dosage: UNK
     Route: 048
     Dates: start: 20130220
  2. CLOZARIL [Suspect]
     Dosage: 300 MG, UNK
     Route: 048
     Dates: start: 201303, end: 201308

REACTIONS (8)
  - Electrocardiogram T wave amplitude decreased [Unknown]
  - Electrocardiogram QT prolonged [Unknown]
  - Ventricular extrasystoles [Recovering/Resolving]
  - Myocarditis [Unknown]
  - C-reactive protein increased [Unknown]
  - Troponin increased [Unknown]
  - Dyspnoea [Unknown]
  - Differential white blood cell count abnormal [Recovering/Resolving]
